FAERS Safety Report 8921719 (Version 2)
Quarter: 2013Q1

REPORT INFORMATION
  Report Type: Report from Study
  Country: JP (occurrence: JP)
  Receive Date: 20121121
  Receipt Date: 20130313
  Transmission Date: 20140127
  Serious: Yes (Other)
  Sender: FDA-Public Use
  Company Number: JP-AMGEN-JPNCT2012074858

PATIENT
  Age: 74 Year
  Sex: Male
  Weight: 45 kg

DRUGS (7)
  1. DARBEPOETIN ALFA [Suspect]
     Indication: NEPHROGENIC ANAEMIA
     Dosage: 60 MUG, Q6WK
     Route: 040
     Dates: start: 20110512
  2. DARBEPOETIN ALFA [Suspect]
     Dosage: 60 MUG, Q6WK
     Route: 040
     Dates: start: 20110714
  3. ADALAT [Concomitant]
     Dosage: UNK
     Route: 048
  4. COVERSYL [Concomitant]
     Dosage: UNK
     Route: 048
  5. LANDEL [Concomitant]
     Dosage: UNK
     Route: 048
  6. ZYLORIC [Concomitant]
     Dosage: UNK
     Route: 048
  7. MEVALOTIN [Concomitant]
     Dosage: UNK
     Route: 048

REACTIONS (1)
  - Rectal cancer recurrent [Recovering/Resolving]
